FAERS Safety Report 9815393 (Version 2)
Quarter: 2014Q1

REPORT INFORMATION
  Report Type: Report from Study
  Country: US (occurrence: US)
  Receive Date: 20140114
  Receipt Date: 20140210
  Transmission Date: 20141002
  Serious: No
  Sender: FDA-Public Use
  Company Number: US-JNJFOC-20140100151

PATIENT
  Age: 56 Year
  Sex: Male
  Weight: 74.84 kg

DRUGS (2)
  1. DURAGESIC [Suspect]
     Indication: PAIN
     Route: 062
     Dates: start: 20121011
  2. PERCOCET [Concomitant]
     Indication: PAIN
     Dosage: 10-350MG/TABLET AS NEEDED.
     Route: 048

REACTIONS (8)
  - Wrong technique in drug usage process [Unknown]
  - Wrong technique in drug usage process [Recovered/Resolved]
  - Wrong technique in drug usage process [Unknown]
  - Poor quality drug administered [Unknown]
  - Product adhesion issue [Unknown]
  - Therapeutic response decreased [Unknown]
  - Product quality issue [Unknown]
  - Product quality issue [Recovered/Resolved]
